FAERS Safety Report 22122723 (Version 1)
Quarter: 2023Q1

REPORT INFORMATION
  Report Type: Spontaneous
  Country: US (occurrence: US)
  Receive Date: 20230321
  Receipt Date: 20230321
  Transmission Date: 20230417
  Serious: No
  Sender: FDA-Public Use
  Company Number: US-BAUSCHBL-2023BNL002138

PATIENT
  Age: 78 Year
  Sex: Male
  Weight: 68.04 kg

DRUGS (2)
  1. BRINZOLAMIDE [Suspect]
     Active Substance: BRINZOLAMIDE
     Indication: Intraocular pressure increased
     Dosage: CALLER STATES THAT HE HAS BEEN USING WITH THIS MEDICATION FOR 14 YRS
     Route: 065
  2. TESSALON [Concomitant]
     Active Substance: BENZONATATE
     Indication: Cough
     Dosage: 200MG AS NEEDED, TAKING FOR 20 YEARS

REACTIONS (2)
  - Instillation site haemorrhage [Unknown]
  - Inappropriate schedule of product administration [Unknown]
